FAERS Safety Report 8043630 (Version 3)
Quarter: 2014Q4

REPORT INFORMATION
  Report Type: Spontaneous
  Country: US (occurrence: US)
  Receive Date: 20110719
  Receipt Date: 20141210
  Transmission Date: 20150529
  Serious: Yes (Hospitalization, Other)
  Sender: FDA-Public Use
  Company Number: US-ROCHE-760459

PATIENT
  Age: 28 Year
  Sex: Male
  Weight: 68.1 kg

DRUGS (1)
  1. ACCUTANE [Suspect]
     Active Substance: ISOTRETINOIN
     Indication: ACNE
     Route: 065
     Dates: start: 1985, end: 1989

REACTIONS (15)
  - Intestinal haemorrhage [Unknown]
  - Irritable bowel syndrome [Unknown]
  - Haemorrhoids [Unknown]
  - Fracture [Unknown]
  - Arthralgia [Unknown]
  - Crohn^s disease [Unknown]
  - Vision blurred [Unknown]
  - Liver disorder [Unknown]
  - Arthritis [Unknown]
  - Depression [Unknown]
  - Hepatic enzyme increased [Unknown]
  - Suicidal ideation [Unknown]
  - Colitis ulcerative [Unknown]
  - Inflammatory bowel disease [Unknown]
  - Gastrointestinal injury [Unknown]

NARRATIVE: CASE EVENT DATE: 1991
